FAERS Safety Report 8135772-6 (Version None)
Quarter: 2012Q1

REPORT INFORMATION
  Report Type: 
  Country: None (occurrence: None)
  Receive Date: 20120214
  Receipt Date: 20120130
  Transmission Date: 20120608
  Serious: Yes (Life-Threatening, Other)
  Sender: FDA-Public Use
  Company Number: JP-WATSON-2012-00820

PATIENT
  Sex: Male

DRUGS (1)
  1. RAPAFLO [Suspect]
     Indication: DYSURIA
     Dosage: 8 MG, DAILY
     Route: 048
     Dates: start: 20060805

REACTIONS (5)
  - ACUTE MYELOID LEUKAEMIA [None]
  - DIARRHOEA [None]
  - DYSPNOEA [None]
  - PANCYTOPENIA [None]
  - PALPITATIONS [None]
